FAERS Safety Report 9725904 (Version 1)
Quarter: 2013Q4

REPORT INFORMATION
  Report Type: Spontaneous
  Country: SG (occurrence: SG)
  Receive Date: 20131203
  Receipt Date: 20131203
  Transmission Date: 20140711
  Serious: Yes (Other)
  Sender: FDA-Public Use
  Company Number: SG-UCBSA-104635

PATIENT
  Age: 80 Year
  Sex: Male

DRUGS (5)
  1. OMEPRAZOLE [Suspect]
     Dosage: UNKNOWN
  2. ATORVASTATIN CALCIUM [Suspect]
     Dosage: UNKNOWN
  3. CLOPIDOGREL [Suspect]
     Dosage: UNKNOWN
  4. FRUSEMIDE [Suspect]
     Dosage: UNKNOWN
  5. METOPROLOL [Suspect]
     Dosage: UNKNOWN

REACTIONS (2)
  - Dermatitis exfoliative [Unknown]
  - Dermatitis exfoliative generalised [Unknown]
